FAERS Safety Report 5640309-7 (Version None)
Quarter: 2008Q1

REPORT INFORMATION
  Report Type: 
  Country: None (occurrence: None)
  Receive Date: 20080227
  Receipt Date: 20080122
  Transmission Date: 20080703
  Serious: No
  Sender: FDA-Public Use
  Company Number: US-BAXTER-2008BH000656

PATIENT
  Age: 10 Year
  Sex: Female

DRUGS (6)
  1. HEPARIN SODIUM [Suspect]
     Indication: PROPHYLAXIS
     Route: 033
     Dates: start: 20070701
  2. HEPARIN SODIUM [Suspect]
     Route: 033
     Dates: end: 20080101
  3. HEPARIN SODIUM [Suspect]
     Dates: start: 20080101
  4. PHOSLO [Concomitant]
     Indication: RENAL FAILURE
     Route: 065
     Dates: start: 20070701
  5. CALCITRIOL [Concomitant]
     Indication: RENAL FAILURE
     Route: 065
     Dates: start: 20070701
  6. DIANEAL [Concomitant]
     Indication: RENAL FAILURE
     Route: 033
     Dates: start: 20070701

REACTIONS (3)
  - ABDOMINAL PAIN UPPER [None]
  - BLOOD PRESSURE INCREASED [None]
  - SWELLING [None]
